FAERS Safety Report 6097617-8 (Version None)
Quarter: 2009Q1

REPORT INFORMATION
  Report Type: 
  Country: None (occurrence: None)
  Receive Date: 20090225
  Receipt Date: 20090225
  Transmission Date: 20090719
  Serious: Yes (Other)
  Sender: FDA-Public Use
  Company Number: None

PATIENT
  Age: 29 Year
  Sex: Female
  Weight: 61.6892 kg

DRUGS (1)
  1. SUMATRIPTAN SUCCINATE [Suspect]
     Indication: MIGRAINE
     Dosage: 50 MG 1 PO A FEW HOURS
     Route: 048
     Dates: start: 20090215, end: 20090215

REACTIONS (3)
  - ABDOMINAL PAIN UPPER [None]
  - MUSCLE SPASMS [None]
  - VOMITING [None]
